FAERS Safety Report 4982970-6 (Version None)
Quarter: 2006Q2

REPORT INFORMATION
  Report Type: 
  Country: None (occurrence: None)
  Receive Date: 20060426
  Receipt Date: 20060414
  Transmission Date: 20061013
  Serious: Yes (Other)
  Sender: FDA-Public Use
  Company Number: US-JNJFOC-20060403457

PATIENT

DRUGS (3)
  1. REMICADE [Suspect]
     Dosage: WEEK 2
  2. REMICADE [Suspect]
     Dosage: WEEK 6
  3. REMICADE [Suspect]
     Indication: RHEUMATOID ARTHRITIS
     Dosage: WEEK 0

REACTIONS (1)
  - MANIA [None]
